APPROVED DRUG PRODUCT: CEFTRIAXONE
Active Ingredient: CEFTRIAXONE SODIUM
Strength: EQ 500MG BASE/VIAL
Dosage Form/Route: INJECTABLE;INTRAMUSCULAR, INTRAVENOUS
Application: A065465 | Product #002
Applicant: BEDFORD LABORATORIES DIV BEN VENUE LABORATORIES INC
Approved: Aug 18, 2008 | RLD: No | RS: No | Type: DISCN